FAERS Safety Report 21656546 (Version 2)
Quarter: 2023Q1

REPORT INFORMATION
  Report Type: Report from Study
  Country: BR (occurrence: BR)
  Receive Date: 20221129
  Receipt Date: 20230110
  Transmission Date: 20230418
  Serious: Yes (Hospitalization)
  Sender: FDA-Public Use
  Company Number: BR-MYLANLABS-2022M1132550

PATIENT
  Age: 23 Year
  Sex: Male
  Weight: 65 kg

DRUGS (3)
  1. HYDROCORTISONE [Suspect]
     Active Substance: HYDROCORTISONE
     Indication: Allergy prophylaxis
     Dosage: 500 MILLIGRAM, ONLY 30MIN BEFORE ANTIVENOM
     Route: 042
     Dates: start: 20160726, end: 20160726
  2. CIMETIDINE [Suspect]
     Active Substance: CIMETIDINE
     Indication: Allergy prophylaxis
     Dosage: 300 MILLIGRAM, ONLY 30MIN BEFORE ANTIVENOM
     Route: 042
     Dates: start: 20160726, end: 20160726
  3. DEXCHLORPHENIRAMINE [Suspect]
     Active Substance: DEXCHLORPHENIRAMINE
     Indication: Allergy prophylaxis
     Dosage: 5 MILLIGRAM, ONLY 30MIN BEFORE ANTIVENOM
     Route: 048
     Dates: start: 20160726, end: 20160726

REACTIONS (1)
  - Drug ineffective [Unknown]
